FAERS Safety Report 16153898 (Version 2)
Quarter: 2019Q2

REPORT INFORMATION
  Report Type: Spontaneous
  Country: US (occurrence: US)
  Receive Date: 20190403
  Receipt Date: 20190415
  Transmission Date: 20190711
  Serious: No
  Sender: FDA-Public Use
  Company Number: US-PFIZER INC-2019140882

PATIENT
  Age: 61 Year
  Sex: Female

DRUGS (2)
  1. IBRANCE [Suspect]
     Active Substance: PALBOCICLIB
     Indication: BREAST CANCER FEMALE
     Dosage: 100 MG, UNK
  2. IBRANCE [Suspect]
     Active Substance: PALBOCICLIB
     Dosage: 75 MG, UNK

REACTIONS (11)
  - Eye disorder [Unknown]
  - Pain of skin [Unknown]
  - Feeling abnormal [Unknown]
  - Dry eye [Unknown]
  - Headache [Unknown]
  - Lacrimation decreased [Unknown]
  - Hypersomnia [Unknown]
  - Migraine [Unknown]
  - Dry skin [Unknown]
  - Fatigue [Unknown]
  - Malaise [Unknown]
